FAERS Safety Report 7536818-6 (Version None)
Quarter: 2011Q2

REPORT INFORMATION
  Report Type: 
  Country: None (occurrence: None)
  Receive Date: 20110609
  Receipt Date: 20110524
  Transmission Date: 20111010
  Serious: No
  Sender: FDA-Public Use
  Company Number: US-B.I. PHARMACEUTICALS,INC./RIDGEFIELD-2011-BP-13848BP

PATIENT
  Age: 53 Year
  Sex: Female

DRUGS (3)
  1. ZANTAC 150 [Suspect]
     Indication: MASTOCYTOSIS
     Dosage: 600 MG
     Route: 048
     Dates: start: 20110430, end: 20110522
  2. CROMOLYN SODIUM [Concomitant]
     Indication: SYSTEMIC MASTOCYTOSIS
  3. CROMOLYN SODIUM [Concomitant]
     Indication: INFLAMMATORY BOWEL DISEASE

REACTIONS (2)
  - ARTHRITIS [None]
  - JOINT RANGE OF MOTION DECREASED [None]
